FAERS Safety Report 5829734-9 (Version None)
Quarter: 2008Q3

REPORT INFORMATION
  Report Type: 
  Country: None (occurrence: None)
  Receive Date: 20080801
  Receipt Date: 20080725
  Transmission Date: 20090109
  Serious: Yes (Hospitalization, Disabling)
  Sender: FDA-Public Use
  Company Number: BE-BAYER-200818615GPV

PATIENT
  Sex: Male

DRUGS (2)
  1. BETAFERON [Suspect]
     Indication: DRUG USE FOR UNKNOWN INDICATION
     Route: 058
     Dates: start: 19990101, end: 20080501
  2. SURGERY [Concomitant]
     Indication: CELLULITIS
     Dates: start: 20080501

REACTIONS (5)
  - CELLULITIS [None]
  - ERYTHEMA [None]
  - HYPERSENSITIVITY [None]
  - PAIN IN EXTREMITY [None]
  - PYREXIA [None]
